FAERS Safety Report 4699793-8 (Version None)
Quarter: 2005Q2

REPORT INFORMATION
  Report Type: 
  Country: None (occurrence: None)
  Receive Date: 20050623
  Receipt Date: 20050615
  Transmission Date: 20051028
  Serious: Yes (Hospitalization)
  Sender: FDA-Public Use
  Company Number: 2005065405

PATIENT
  Age: 54 Year
  Sex: Female
  Weight: 136.0791 kg

DRUGS (7)
  1. CELEBREX [Suspect]
     Indication: ARTHRITIS
     Dosage: (200 MG), ORAL
     Route: 048
     Dates: end: 20030101
  2. BEXTRA [Suspect]
     Indication: ARTHRITIS
     Dosage: 20 MG (20 MG, 1 IN 1 D), ORAL
     Route: 048
     Dates: start: 20030101, end: 20050101
  3. VERAPAMIL [Concomitant]
  4. ACCOLATE [Concomitant]
  5. ZOCOR [Concomitant]
  6. TRIAMTERENE (TRIAMTERENE) [Concomitant]
  7. METHOCARBAMOL [Concomitant]

REACTIONS (9)
  - BLOOD POTASSIUM DECREASED [None]
  - DIARRHOEA [None]
  - DIZZINESS [None]
  - DRUG EFFECT DECREASED [None]
  - DYSGEUSIA [None]
  - HAEMORRHOIDAL HAEMORRHAGE [None]
  - ORAL INTAKE REDUCED [None]
  - VERTIGO POSITIONAL [None]
  - VOMITING [None]
